FAERS Safety Report 4988279-9 (Version None)
Quarter: 2006Q2

REPORT INFORMATION
  Report Type: 
  Country: None (occurrence: None)
  Receive Date: 20060425
  Receipt Date: 20060410
  Transmission Date: 20061013
  Serious: Yes (Hospitalization)
  Sender: FDA-Public Use
  Company Number: 2006041368

PATIENT
  Age: 58 Year
  Sex: Female

DRUGS (4)
  1. SUTENT [Suspect]
     Indication: METASTATIC RENAL CELL CARCINOMA
     Dosage: 50 MG (50 MG, 4 WEEKS INTERVAL:    WEEKS), ORAL
     Route: 048
     Dates: start: 20060118, end: 20060318
  2. INIPOMP (PANTOPRAZOLE) [Concomitant]
  3. ELUDRIL (ASCORBIC ACID, CHLORHEXIDINE GLUCONATE, TETRACAINE HYDROCHLOR [Concomitant]
  4. MICROLAX [Concomitant]

REACTIONS (2)
  - ANXIETY [None]
  - CHEST PAIN [None]
